FAERS Safety Report 10795465 (Version 1)
Quarter: 2015Q1

REPORT INFORMATION
  Report Type: Spontaneous
  Country: TW (occurrence: TW)
  Receive Date: 20150215
  Receipt Date: 20150215
  Transmission Date: 20150721
  Serious: Yes (Hospitalization, Other)
  Sender: FDA-Public Use
  Company Number: TW-WATSON-2015-01813

PATIENT
  Age: 49 Year
  Sex: Female

DRUGS (2)
  1. DIPHENHYDRAMINE HYDROCHLORIDE (WATSON LABORATORIES) [Suspect]
     Active Substance: DIPHENHYDRAMINE HYDROCHLORIDE
     Dosage: 30 MG, QAM
     Route: 030
  2. DIPHENHYDRAMINE HYDROCHLORIDE (WATSON LABORATORIES) [Suspect]
     Active Substance: DIPHENHYDRAMINE HYDROCHLORIDE
     Indication: INSOMNIA
     Dosage: 450 MG, DAILY
     Route: 030

REACTIONS (20)
  - Disturbance in attention [Recovered/Resolved]
  - Injection site warmth [None]
  - Muscle necrosis [Recovered/Resolved]
  - Anxiety [Recovered/Resolved]
  - Irritability [Recovered/Resolved]
  - Heart rate increased [Recovered/Resolved]
  - Injection site pain [None]
  - Injection site swelling [None]
  - Major depression [None]
  - Muscle injury [None]
  - Insomnia [Recovered/Resolved]
  - Drug abuse [None]
  - Electrocardiogram QT prolonged [Recovered/Resolved]
  - Impaired self-care [None]
  - Gait disturbance [None]
  - Deep vein thrombosis [None]
  - Withdrawal syndrome [Recovered/Resolved]
  - Drug dependence [Unknown]
  - Overdose [Recovered/Resolved]
  - Oedema peripheral [None]
